FAERS Safety Report 12300630 (Version 1)
Quarter: 2016Q2

REPORT INFORMATION
  Report Type: Not Available
  Country: None (occurrence: US)
  Receive Date: 20160425
  Receipt Date: 20160425
  Transmission Date: 20160815
  Serious: Yes (Hospitalization)
  Sender: FDA-Public Use
  Company Number: US-AKORN-29172

PATIENT
  Age: 46 Year
  Sex: Female
  Weight: 62 kg

DRUGS (1)
  1. SUBLIMAZE [Suspect]
     Active Substance: FENTANYL CITRATE

REACTIONS (5)
  - Arthritis infective [None]
  - Arthralgia [None]
  - Oedema peripheral [None]
  - Embolism [None]
  - Encephalopathy [None]
